FAERS Safety Report 6145072-1 (Version None)
Quarter: 2009Q2

REPORT INFORMATION
  Report Type: 
  Country: None (occurrence: None)
  Receive Date: 20090401
  Receipt Date: 20090401
  Transmission Date: 20091009
  Serious: Yes (Disabling, Other)
  Sender: FDA-Public Use
  Company Number: None

PATIENT
  Age: 61 Year
  Sex: Male
  Weight: 63.5036 kg

DRUGS (2)
  1. LYRICA [Suspect]
     Indication: NEURALGIA
     Dosage: 1 CAPSULE 2 TIMES A DAY PO
     Route: 048
     Dates: start: 20090302, end: 20090330
  2. LYRICA [Suspect]
     Indication: NEURALGIA
     Dosage: 1 CAPSULE 2 TIMES A DAY PO
     Route: 048
     Dates: start: 20090330, end: 20090331

REACTIONS (9)
  - ABDOMINAL DISTENSION [None]
  - ABNORMAL WEIGHT GAIN [None]
  - ASTHENIA [None]
  - ATAXIA [None]
  - HEADACHE [None]
  - JAUNDICE [None]
  - OEDEMA PERIPHERAL [None]
  - PAIN [None]
  - SINUSITIS [None]
